FAERS Safety Report 21377942 (Version 1)
Quarter: 2022Q3

REPORT INFORMATION
  Report Type: Report from Study
  Country: NL (occurrence: NL)
  Receive Date: 20220926
  Receipt Date: 20220926
  Transmission Date: 20221027
  Serious: Yes (Hospitalization)
  Sender: FDA-Public Use
  Company Number: NL-ABBVIE-4130350

PATIENT
  Age: 74 Year
  Sex: Female

DRUGS (6)
  1. CARBIDOPA\LEVODOPA [Suspect]
     Active Substance: CARBIDOPA\LEVODOPA
     Indication: Parkinson^s disease
     Dosage: MD: 14.0 ML, CD: 3.9 ML/H, ED: 3.5 ML
     Route: 050
  2. CARBIDOPA\LEVODOPA [Suspect]
     Active Substance: CARBIDOPA\LEVODOPA
     Dosage: MD: 14.0 ML, CD: 3.9  ML/H, ED: 3.5 ML, END: 1.0 ML, CND: 2.0 ML/H
     Route: 050
  3. CARBIDOPA\LEVODOPA [Suspect]
     Active Substance: CARBIDOPA\LEVODOPA
     Dosage: MD: 14.0 ML, CD: 3.9  ML/H, ED: 3.5 ML, END: 1.0 ML, CND: 2.0 ML/H
     Route: 050
     Dates: start: 20211115
  4. CARBIDOPA\LEVODOPA [Concomitant]
     Active Substance: CARBIDOPA\LEVODOPA
     Indication: Parkinson^s disease
     Dosage: 200/50MG?REMAINS AT 16 HOURS AND GOES TO 24 HOURS
     Route: 048
  5. ROTIGOTINE [Concomitant]
     Active Substance: ROTIGOTINE
     Indication: Parkinson^s disease
     Route: 062
  6. POLYETHYLENE GLYCOLS [Concomitant]
     Active Substance: POLYETHYLENE GLYCOLS
     Indication: Laxative supportive care
     Dosage: FREQUENCY TEXT: 1-2 SACHETS A DAY
     Route: 048

REACTIONS (4)
  - Dysuria [Not Recovered/Not Resolved]
  - Colporrhaphy [Recovering/Resolving]
  - Procedural nausea [Not Recovered/Not Resolved]
  - Vaginal prolapse repair [Recovering/Resolving]

NARRATIVE: CASE EVENT DATE: 20220101
